FAERS Safety Report 5321892-8 (Version None)
Quarter: 2007Q2

REPORT INFORMATION
  Report Type: 
  Country: None (occurrence: None)
  Receive Date: 20070510
  Receipt Date: 20070427
  Transmission Date: 20071010
  Serious: Yes (Other)
  Sender: FDA-Public Use
  Company Number: GB-MERCK-0704USA06795

PATIENT
  Age: 63 Year
  Sex: Female

DRUGS (1)
  1. PRINIVIL [Suspect]
     Route: 048

REACTIONS (1)
  - ANGIOEDEMA [None]
